FAERS Safety Report 13635401 (Version 1)
Quarter: 2017Q2

REPORT INFORMATION
  Report Type: Spontaneous
  Country: US (occurrence: US)
  Receive Date: 20170531
  Receipt Date: 20170531
  Transmission Date: 20170830
  Serious: No
  Sender: FDA-Public Use
  Company Number: US-ASTELLAS-1712319

PATIENT
  Sex: Male

DRUGS (1)
  1. TARCEVA [Suspect]
     Active Substance: ERLOTINIB HYDROCHLORIDE
     Indication: LUNG NEOPLASM MALIGNANT
     Route: 048
     Dates: start: 20160121

REACTIONS (11)
  - Rhinorrhoea [Unknown]
  - Dry skin [Unknown]
  - Pruritus [Unknown]
  - Chills [Unknown]
  - Diarrhoea [Unknown]
  - Lacrimation increased [Unknown]
  - Fatigue [Unknown]
  - Rash [Unknown]
  - Growth of eyelashes [Unknown]
  - Rash generalised [Unknown]
  - Alopecia [Unknown]
